FAERS Safety Report 16724254 (Version 1)
Quarter: 2019Q3

REPORT INFORMATION
  Report Type: Spontaneous
  Country: US (occurrence: US)
  Receive Date: 20190821
  Receipt Date: 20190821
  Transmission Date: 20191005
  Serious: No
  Sender: FDA-Public Use
  Company Number: US-ELI_LILLY_AND_COMPANY-US201908007694

PATIENT
  Sex: Female

DRUGS (5)
  1. BASAGLAR [Suspect]
     Active Substance: INSULIN GLARGINE
     Dosage: 98 U, DAILY
     Route: 058
     Dates: start: 2016
  2. BABY ASPIRIN [Concomitant]
     Active Substance: ASPIRIN
     Indication: PRODUCT USED FOR UNKNOWN INDICATION
  3. BASAGLAR [Suspect]
     Active Substance: INSULIN GLARGINE
     Dosage: 26 U, DAILY
     Route: 058
     Dates: start: 2016
  4. ASAPRIN [Concomitant]
     Active Substance: ASPIRIN
     Indication: PRODUCT USED FOR UNKNOWN INDICATION
  5. BASAGLAR [Suspect]
     Active Substance: INSULIN GLARGINE
     Indication: TYPE 2 DIABETES MELLITUS
     Dosage: 24 U, DAILY
     Route: 058
     Dates: start: 2016

REACTIONS (2)
  - Drug ineffective [Not Recovered/Not Resolved]
  - Blood glucose increased [Not Recovered/Not Resolved]

NARRATIVE: CASE EVENT DATE: 2018
